FAERS Safety Report 6732349-1 (Version None)
Quarter: 2010Q2

REPORT INFORMATION
  Report Type: 
  Country: None (occurrence: None)
  Receive Date: 20100519
  Receipt Date: 20100511
  Transmission Date: 20101027
  Serious: Yes (Other)
  Sender: FDA-Public Use
  Company Number: DE-CEPHALON-2010002807

PATIENT
  Age: 80 Year
  Sex: Male

DRUGS (1)
  1. TREANDA [Suspect]

REACTIONS (1)
  - CARDIOMYOPATHY [None]
